FAERS Safety Report 17992100 (Version 2)
Quarter: 2020Q3

REPORT INFORMATION
  Report Type: Spontaneous
  Country: KR (occurrence: KR)
  Receive Date: 20200707
  Receipt Date: 20200713
  Transmission Date: 20201103
  Serious: Yes (Other)
  Sender: FDA-Public Use
  Company Number: NVSC2020KR180982

PATIENT
  Age: 82 Year
  Sex: Female

DRUGS (9)
  1. KETOTIFEN [Suspect]
     Active Substance: KETOTIFEN
     Indication: SWELLING OF EYELID
     Dosage: UNK UNK, BID
     Route: 048
     Dates: start: 201907
  2. OLOPATADINE HYDROCHLORIDE. [Suspect]
     Active Substance: OLOPATADINE HYDROCHLORIDE
     Indication: SWELLING OF EYELID
     Dosage: UNK, QD
     Route: 061
     Dates: start: 201907
  3. OLOPATADINE HYDROCHLORIDE. [Suspect]
     Active Substance: OLOPATADINE HYDROCHLORIDE
     Indication: HYPERAEMIA
  4. SIMBRINZA [Suspect]
     Active Substance: BRIMONIDINE TARTRATE\BRINZOLAMIDE
     Indication: ANGLE CLOSURE GLAUCOMA
     Dosage: UNK, TWICE A DAY
     Route: 061
     Dates: start: 20170822
  5. OLOPATADINE HYDROCHLORIDE. [Suspect]
     Active Substance: OLOPATADINE HYDROCHLORIDE
     Indication: SECRETION DISCHARGE
  6. KETOTIFEN [Suspect]
     Active Substance: KETOTIFEN
     Indication: SECRETION DISCHARGE
  7. PROPAFENONE HYDROCHLORIDE. [Concomitant]
     Active Substance: PROPAFENONE HYDROCHLORIDE
     Indication: PRODUCT USED FOR UNKNOWN INDICATION
     Dosage: 225 MG
     Route: 065
  8. KETOTIFEN [Suspect]
     Active Substance: KETOTIFEN
     Indication: HYPERAEMIA
  9. WARFARIN SODIUM. [Concomitant]
     Active Substance: WARFARIN SODIUM
     Indication: PRODUCT USED FOR UNKNOWN INDICATION
     Dosage: 15 MG
     Route: 065

REACTIONS (3)
  - Uveitis [Recovered/Resolved]
  - Drug ineffective [Unknown]
  - Conjunctivitis allergic [Recovered/Resolved]

NARRATIVE: CASE EVENT DATE: 201907
